FAERS Safety Report 9944341 (Version 1)
Quarter: 2014Q1

REPORT INFORMATION
  Report Type: Report from Study
  Country: US (occurrence: US)
  Receive Date: 20140303
  Receipt Date: 20140303
  Transmission Date: 20141002
  Serious: No
  Sender: FDA-Public Use
  Company Number: US-ABBVIE-13P-163-1054327-00

PATIENT
  Age: 59 Year
  Sex: Female
  Weight: 74.91 kg

DRUGS (11)
  1. HUMIRA [Suspect]
     Indication: RHEUMATOID ARTHRITIS
     Dates: start: 201207, end: 201301
  2. HUMIRA [Suspect]
     Dates: start: 20130202
  3. METHOTREXATE [Concomitant]
     Indication: RHEUMATOID ARTHRITIS
  4. PREDNISONE [Concomitant]
     Indication: RHEUMATOID ARTHRITIS
  5. DIOVAN HCT [Concomitant]
     Indication: HYPERTENSION
  6. CRESTOR [Concomitant]
     Indication: BLOOD CHOLESTEROL INCREASED
  7. LEVOXYL [Concomitant]
     Indication: HYPOTHYROIDISM
  8. LEXAPRO [Concomitant]
     Indication: DEPRESSION
  9. MULTIVITAMIN [Concomitant]
     Indication: SUPPLEMENTATION THERAPY
  10. FISH OIL [Concomitant]
     Indication: SUPPLEMENTATION THERAPY
  11. CRANBERRY [Concomitant]
     Indication: SUPPLEMENTATION THERAPY

REACTIONS (3)
  - Precancerous skin lesion [Recovered/Resolved]
  - Tooth infection [Not Recovered/Not Resolved]
  - Sinusitis [Recovered/Resolved]
